FAERS Safety Report 20510842 (Version 2)
Quarter: 2022Q1

REPORT INFORMATION
  Report Type: Spontaneous
  Country: JP (occurrence: JP)
  Receive Date: 20220224
  Receipt Date: 20220317
  Transmission Date: 20220423
  Serious: Yes (Hospitalization)
  Sender: FDA-Public Use
  Company Number: JP-TEVA-2022-JP-2009266

PATIENT
  Sex: Male

DRUGS (3)
  1. PREDNISOLONE [Suspect]
     Active Substance: PREDNISOLONE
     Indication: Dermatomyositis
     Dosage: 2 MG/KG DAILY;
     Route: 048
  2. METHYLPREDNISOLONE [Concomitant]
     Active Substance: METHYLPREDNISOLONE
     Indication: Dermatomyositis
     Dosage: 30 MG/KG DAILY; PULSE THERAPY; TWO COURSES; THREE CONSECUTIVE DAYS EACH
     Route: 065
  3. METHOTREXATE [Concomitant]
     Active Substance: METHOTREXATE
     Indication: Dermatomyositis
     Route: 065

REACTIONS (1)
  - Symptom masked [Unknown]
